FAERS Safety Report 8221679-2 (Version None)
Quarter: 2012Q1

REPORT INFORMATION
  Report Type: 
  Country: None (occurrence: None)
  Receive Date: 20120320
  Receipt Date: 20120312
  Transmission Date: 20120608
  Serious: Yes (Hospitalization)
  Sender: FDA-Public Use
  Company Number: US-VERTEX PHARMACEUTICALS INC.-AE-2012-003542

PATIENT
  Age: 74 Year
  Sex: Female

DRUGS (3)
  1. RIBAVIRIN [Concomitant]
     Indication: HEPATITIS C
     Dates: start: 20111021
  2. PEGINTERFERON [Concomitant]
     Indication: HEPATITIS C
     Dates: start: 20111021
  3. INCIVEK [Suspect]
     Indication: HEPATITIS C
     Dates: start: 20111021

REACTIONS (1)
  - PANCYTOPENIA [None]
